FAERS Safety Report 23226222 (Version 2)
Quarter: 2024Q1

REPORT INFORMATION
  Report Type: Report from Study
  Country: US (occurrence: None)
  Receive Date: 20231124
  Receipt Date: 20240116
  Transmission Date: 20240409
  Serious: Yes (Other)
  Sender: FDA-Public Use
  Company Number: 2023A185157

PATIENT
  Age: 69 Year
  Sex: Male
  Weight: 50.1 kg

DRUGS (1)
  1. CALQUENCE [Suspect]
     Active Substance: ACALABRUTINIB
     Indication: Mantle cell lymphoma
     Route: 048
     Dates: start: 20230720, end: 20230824

REACTIONS (6)
  - Drug ineffective [Unknown]
  - Metastases to central nervous system [Unknown]
  - Malignant neoplasm progression [Unknown]
  - Somnolence [Unknown]
  - Peripheral swelling [Unknown]
  - Fatigue [Unknown]
